FAERS Safety Report 5377676-8 (Version None)
Quarter: 2007Q2

REPORT INFORMATION
  Report Type: 
  Country: None (occurrence: None)
  Receive Date: 20070530
  Receipt Date: 20070305
  Transmission Date: 20071010
  Serious: No
  Sender: FDA-Public Use
  Company Number: 2007PV031106

PATIENT
  Age: 43 Year
  Sex: Male
  Weight: 145.151 kg

DRUGS (1)
  1. BYETTA [Suspect]
     Indication: WEIGHT DECREASED
     Dosage: SC
     Route: 058
     Dates: start: 20060101

REACTIONS (2)
  - DECREASED APPETITE [None]
  - WEIGHT DECREASED [None]
